FAERS Safety Report 7243960-6 (Version None)
Quarter: 2011Q1

REPORT INFORMATION
  Report Type: 
  Country: None (occurrence: None)
  Receive Date: 20110125
  Receipt Date: 20110112
  Transmission Date: 20110831
  Serious: Yes (Other)
  Sender: FDA-Public Use
  Company Number: PHEH2011US00440

PATIENT
  Sex: Female

DRUGS (2)
  1. RECLAST [Suspect]
  2. FOSAMAX [Suspect]

REACTIONS (6)
  - INJURY [None]
  - PAIN [None]
  - DECREASED INTEREST [None]
  - DISABILITY [None]
  - ANXIETY [None]
  - OSTEONECROSIS OF JAW [None]
